FAERS Safety Report 5515602-9 (Version None)
Quarter: 2007Q4

REPORT INFORMATION
  Report Type: 
  Country: None (occurrence: None)
  Receive Date: 20071113
  Receipt Date: 20070625
  Transmission Date: 20080405
  Serious: No
  Sender: FDA-Public Use
  Company Number: A0659999A

PATIENT
  Age: 64 Year
  Sex: Female

DRUGS (9)
  1. COREG [Suspect]
     Indication: HYPERTENSION
     Dosage: 6.25MG TWICE PER DAY
     Route: 048
     Dates: start: 20070101
  2. GLUCOPHAGE [Concomitant]
  3. LANTUS [Concomitant]
  4. AVANDIA [Concomitant]
  5. ATACAND [Concomitant]
  6. TEVETEN [Concomitant]
  7. SINUS PILLS [Concomitant]
  8. WATER PILL [Concomitant]
  9. POTASSIUM CHLORIDE [Concomitant]

REACTIONS (1)
  - BLOOD PRESSURE DECREASED [None]
